FAERS Safety Report 4718146-7 (Version None)
Quarter: 2005Q3

REPORT INFORMATION
  Report Type: 
  Country: None (occurrence: None)
  Receive Date: 20050718
  Receipt Date: 20050718
  Transmission Date: 20060218
  Serious: Yes (Hospitalization)
  Sender: FDA-Public Use
  Company Number: None

PATIENT
  Age: 71 Year
  Sex: Male

DRUGS (5)
  1. PROMETHAZINE [Suspect]
     Indication: NAUSEA
     Dosage: 12.5 MG IV BOLUS
     Route: 040
     Dates: start: 20050425, end: 20050425
  2. PROMETHAZINE [Suspect]
     Indication: VOMITING
     Dosage: 12.5 MG IV BOLUS
     Route: 040
     Dates: start: 20050425, end: 20050425
  3. ATROVENT/ALBUTEROL NEB [Concomitant]
  4. ALBUTEROL [Concomitant]
  5. GATAFLOXACIN [Concomitant]

REACTIONS (3)
  - ABNORMAL BEHAVIOUR [None]
  - CONFUSIONAL STATE [None]
  - OXYGEN SATURATION DECREASED [None]
